FAERS Safety Report 5073374-9 (Version None)
Quarter: 2006Q3

REPORT INFORMATION
  Report Type: 
  Country: None (occurrence: None)
  Receive Date: 20060711
  Receipt Date: 20050524
  Transmission Date: 20061208
  Serious: Yes (Other)
  Sender: FDA-Public Use
  Company Number: PHEH2005S03321

PATIENT
  Age: 59 Year
  Sex: Female

DRUGS (2)
  1. OCUPRESS [Suspect]
     Indication: OPEN ANGLE GLAUCOMA
     Dosage: 1 GTT, QD, TOPICAL OPHTH
     Route: 061
     Dates: start: 19960101
  2. XALATAN [Suspect]
     Indication: OPEN ANGLE GLAUCOMA
     Dates: start: 19960101

REACTIONS (2)
  - DRUG INEFFECTIVE [None]
  - INTRAOCULAR PRESSURE INCREASED [None]
